FAERS Safety Report 23861471 (Version 1)
Quarter: 2024Q2

REPORT INFORMATION
  Report Type: Spontaneous
  Country: FR (occurrence: FR)
  Receive Date: 20240516
  Receipt Date: 20240516
  Transmission Date: 20240716
  Serious: Yes (Other)
  Sender: FDA-Public Use
  Company Number: None

PATIENT
  Age: 29 Year
  Sex: Female
  Weight: 64 kg

DRUGS (10)
  1. CARBOPLATIN [Suspect]
     Active Substance: CARBOPLATIN
     Indication: Triple negative breast cancer
     Dosage: 400MG/M SQ WEEKLY, THE EFFECT BEGINS AFTER C3
     Dates: start: 20240124, end: 20240226
  2. PRIMPERAN [Concomitant]
     Active Substance: METOCLOPRAMIDE HYDROCHLORIDE
     Dosage: 0.1% ADULTS, ORAL SOLUTION SWEETENED WITH SODIUM CYCLAMATE AND SODIUM SACCHARIN
  3. VOGALENE [Concomitant]
     Active Substance: METOPIMAZINE
     Dosage: 10 MG/1 ML, SOLUTION FOR INJECTION IN AMPOULE
  4. POLARAMINE [Concomitant]
     Active Substance: DEXCHLORPHENIRAMINE MALEATE
     Dosage: 5 MG/1 ML, SOLUTION FOR INJECTION
  5. ONDANSETRON [Concomitant]
     Active Substance: ONDANSETRON
  6. METHYLPREDNISOLONE [Concomitant]
     Active Substance: METHYLPREDNISOLONE
  7. PACLITAXEL [Concomitant]
     Active Substance: PACLITAXEL
  8. PEMBROLIZUMAB [Concomitant]
     Active Substance: PEMBROLIZUMAB
  9. CIMETIDINE [Concomitant]
     Active Substance: CIMETIDINE
     Dosage: 200 MG, EFFERVESCENT TABLET
  10. EMEND [Concomitant]
     Active Substance: APREPITANT
     Dosage: 125 MG, CAPSULE AND EMEND 80 MG, CAPSULE

REACTIONS (1)
  - Toxic skin eruption [Recovered/Resolved]

NARRATIVE: CASE EVENT DATE: 20240210
